FAERS Safety Report 6094122-X (Version None)
Quarter: 2009Q1

REPORT INFORMATION
  Report Type: 
  Country: None (occurrence: None)
  Receive Date: 20090226
  Receipt Date: 20090217
  Transmission Date: 20090719
  Serious: Yes (Hospitalization)
  Sender: FDA-Public Use
  Company Number: US-ROCHE-615130

PATIENT
  Sex: Female
  Weight: 62.6 kg

DRUGS (3)
  1. CAPECITABINE [Suspect]
     Dosage: FREQUENCY REPORTED AS BID X 28 DAYS.
     Route: 048
     Dates: start: 20080912, end: 20090109
  2. BEVACIZUMAB [Suspect]
     Route: 042
     Dates: start: 20080912, end: 20081231
  3. OXALIPLATIN [Suspect]
     Route: 042
     Dates: start: 20080912, end: 20081231

REACTIONS (3)
  - ABDOMINAL PAIN [None]
  - DIARRHOEA [None]
  - ILEITIS [None]
